FAERS Safety Report 19438814 (Version 1)
Quarter: 2021Q2

REPORT INFORMATION
  Report Type: Spontaneous
  Country: ES (occurrence: ES)
  Receive Date: 20210618
  Receipt Date: 20210618
  Transmission Date: 20210717
  Serious: Yes (Death, Other)
  Sender: FDA-Public Use
  Company Number: ES-MYLANLABS-2021M1035511

PATIENT
  Age: 57 Year
  Sex: Male

DRUGS (4)
  1. LOPINAVIR/RITONAVIR [Suspect]
     Active Substance: LOPINAVIR\RITONAVIR
     Indication: COVID-19
     Dosage: 400 MILLIGRAM
     Route: 048
     Dates: start: 20200313
  2. FUROSEMIDA                         /00032601/ [Suspect]
     Active Substance: FUROSEMIDE
     Indication: PRODUCT USED FOR UNKNOWN INDICATION
     Dosage: UNK
     Route: 041
     Dates: start: 20200316
  3. HIDROXICLOROQUINA                  /00072601/ [Suspect]
     Active Substance: HYDROXYCHLOROQUINE
     Indication: COVID-19
     Dosage: 400/12 H PRIMER DIA, LUEGO 200MG
     Route: 048
     Dates: start: 20200315
  4. TOCILIZUMAB. [Suspect]
     Active Substance: TOCILIZUMAB
     Indication: COVID-19
     Dosage: 800 MILLIGRAM
     Dates: start: 20200314

REACTIONS (3)
  - Hypernatraemia [Fatal]
  - Renal failure [Fatal]
  - Off label use [Unknown]

NARRATIVE: CASE EVENT DATE: 20200313
